FAERS Safety Report 4727697-0 (Version None)
Quarter: 2005Q3

REPORT INFORMATION
  Report Type: 
  Country: None (occurrence: None)
  Receive Date: 20050725
  Receipt Date: 20050429
  Transmission Date: 20060218
  Serious: No
  Sender: FDA-Public Use
  Company Number: USA050596972

PATIENT
  Age: 10 Year
  Sex: Male
  Weight: 42 kg

DRUGS (1)
  1. STRATTERA [Suspect]
     Indication: ATTENTION DEFICIT/HYPERACTIVITY DISORDER
     Dosage: 60 MG/1 DAY
     Dates: start: 20050201

REACTIONS (4)
  - DRY MOUTH [None]
  - PRESCRIBED OVERDOSE [None]
  - TIC [None]
  - VOMITING [None]
